FAERS Safety Report 19467424 (Version 3)
Quarter: 2021Q4

REPORT INFORMATION
  Report Type: Spontaneous
  Country: DE (occurrence: DE)
  Receive Date: 20210628
  Receipt Date: 20211223
  Transmission Date: 20220303
  Serious: Yes (Death, Hospitalization, Other)
  Sender: FDA-Public Use
  Company Number: None

PATIENT
  Age: 59 Year

DRUGS (18)
  1. TACROLIMUS [Suspect]
     Active Substance: TACROLIMUS
     Indication: Immunosuppressant drug therapy
     Dosage: NUMBER OF UNITS IN THE INTERVAL 0.5, ON DAY 56
     Route: 048
  2. TACROLIMUS [Suspect]
     Active Substance: TACROLIMUS
     Indication: Immunosuppressant drug therapy
     Dosage: NUMBER OF UNITS IN THE INTERVAL 0.5. TAPERED DOWN ON DAY 61
     Route: 048
  3. PREDNISOLONE [Suspect]
     Active Substance: PREDNISOLONE
     Indication: Immunosuppressant drug therapy
     Dosage: TAPERED DOWN FROM 500MG TO 80MG ON DAY 51 TO 58 AND THEN TAPERED DOWN TO 60MG ON DAY?76
     Route: 042
  4. PREDNISOLONE [Suspect]
     Active Substance: PREDNISOLONE
     Indication: Immunosuppressant drug therapy
     Dosage: NUMBER OF UNITS IN THE INTERVAL 0.5, FROM DAY 42 TO 46
     Route: 042
  5. PREDNISOLONE [Suspect]
     Active Substance: PREDNISOLONE
     Indication: Immunosuppressant drug therapy
     Dosage: FROM DAY 47-48
     Route: 042
  6. PREDNISOLONE [Suspect]
     Active Substance: PREDNISOLONE
     Indication: Immunosuppressant drug therapy
     Dosage: TAPERED DOWN FROM 500MG TO 200MG/DAY IN DAYS 90-90
     Route: 042
  7. PREDNISOLONE [Suspect]
     Active Substance: PREDNISOLONE
     Indication: Immunosuppressant drug therapy
     Dosage: FROM DAY 42-46
     Route: 042
  8. PREDNISOLONE [Suspect]
     Active Substance: PREDNISOLONE
     Indication: Immunosuppressant drug therapy
     Dosage: ON DAY 85
     Route: 042
  9. PREDNISOLONE [Suspect]
     Active Substance: PREDNISOLONE
     Indication: Immunosuppressant drug therapy
     Dosage: ON DAY 85
     Route: 042
  10. PREDNISOLONE [Suspect]
     Active Substance: PREDNISOLONE
     Indication: Immunosuppressant drug therapy
     Dosage: ON DAY 41
     Route: 042
  11. PREDNISOLONE [Suspect]
     Active Substance: PREDNISOLONE
     Indication: Immunosuppressant drug therapy
     Dosage: TAPERED DOWN FROM 500 MG TO 200 MG/DAY IN DAYS 90 TO 90
     Route: 042
  12. PREDNISOLONE [Suspect]
     Active Substance: PREDNISOLONE
     Indication: Immunosuppressant drug therapy
     Dosage: ON DAY 50
     Route: 042
  13. OBINUTUZUMAB [Suspect]
     Active Substance: OBINUTUZUMAB
     Indication: Follicular lymphoma
     Dosage: D1, D8, D15 OF C1; D1 OF C2 TO 6
     Route: 065
  14. ATEZOLIZUMAB [Suspect]
     Active Substance: ATEZOLIZUMAB
     Indication: Follicular lymphoma
     Dosage: D1 OF C2 TO 6
     Route: 065
  15. BUDESONIDE [Suspect]
     Active Substance: BUDESONIDE
     Indication: Immunosuppressant drug therapy
     Dosage: 250 MG/ML
     Route: 065
  16. BENDAMUSTINE [Suspect]
     Active Substance: BENDAMUSTINE
     Indication: Follicular lymphoma
     Route: 065
  17. TOCILIZUMAB [Suspect]
     Active Substance: TOCILIZUMAB
     Indication: Immunosuppressant drug therapy
     Dosage: ON DAY 44 AND DAY 85
     Route: 042
  18. POLATUZUMAB VEDOTIN [Suspect]
     Active Substance: POLATUZUMAB VEDOTIN
     Indication: Follicular lymphoma
     Dosage: D1 OF CYCLE 1-6
     Route: 065

REACTIONS (11)
  - Erythema [Fatal]
  - Conjunctivitis [Fatal]
  - Bronchopulmonary aspergillosis [Fatal]
  - Cytomegalovirus infection [Fatal]
  - Pneumonitis [Fatal]
  - Stomatitis [Fatal]
  - Pulmonary embolism [Fatal]
  - Product use in unapproved indication [Fatal]
  - Transaminases increased [Fatal]
  - Guillain-Barre syndrome [Fatal]
  - Disease progression [Fatal]
